FAERS Safety Report 9752368 (Version 1)
Quarter: 2013Q4

REPORT INFORMATION
  Report Type: Spontaneous
  Country: US (occurrence: None)
  Receive Date: 20131212
  Receipt Date: 20131212
  Transmission Date: 20140711
  Serious: Yes (Life-Threatening, Hospitalization)
  Sender: FDA-Public Use
  Company Number: None

PATIENT
  Sex: Male
  Weight: 74.84 kg

DRUGS (9)
  1. AMBIEN [Suspect]
     Indication: INSOMNIA
     Route: 048
     Dates: end: 20131104
  2. TRIAZOLAM [Suspect]
     Dosage: 2 PILLS AT BEDTIME
     Route: 048
     Dates: end: 20131104
  3. PRAVASTATIN SODIUM [Concomitant]
  4. NEXIUM [Concomitant]
  5. METOPROLOL TARTRATE [Suspect]
  6. TESTOSTERONE [Concomitant]
  7. ACID REDUCERS [Concomitant]
  8. PEPPERMINTS [Concomitant]
  9. B.C. POWDERS [Concomitant]

REACTIONS (5)
  - Aggression [None]
  - Fall [None]
  - Amnesia [None]
  - Hallucination [None]
  - Somnambulism [None]
